FAERS Safety Report 5394646-4 (Version None)
Quarter: 2007Q3

REPORT INFORMATION
  Report Type: 
  Country: None (occurrence: None)
  Receive Date: 20070723
  Receipt Date: 20070711
  Transmission Date: 20080115
  Serious: Yes (Other)
  Sender: FDA-Public Use
  Company Number: US-PFIZER INC-2007057812

PATIENT
  Sex: Female
  Weight: 61.7 kg

DRUGS (2)
  1. SINEQUAN [Suspect]
     Indication: DEPRESSION
     Route: 065
  2. SINEQUAN [Suspect]
     Route: 065

REACTIONS (2)
  - ANEURYSM [None]
  - CARDIAC DISORDER [None]
